FAERS Safety Report 7900888-3 (Version None)
Quarter: 2011Q4

REPORT INFORMATION
  Report Type: 
  Country: None (occurrence: None)
  Receive Date: 20111108
  Receipt Date: 20111026
  Transmission Date: 20120403
  Serious: No
  Sender: FDA-Public Use
  Company Number: ES-SANOFI-AVENTIS-2011SA014586

PATIENT
  Age: 59 Year
  Sex: Male

DRUGS (8)
  1. ATENOLOL [Concomitant]
  2. OXYGEN [Concomitant]
  3. ALL OTHER THERAPEUTIC PRODUCTS [Concomitant]
  4. ORAL ANTIDIABETICS [Concomitant]
     Indication: DIABETES MELLITUS
  5. SINTROM [Concomitant]
  6. HMG COA REDUCTASE INHIBITORS [Concomitant]
  7. IRBESARTAN [Concomitant]
  8. MULTAQ [Suspect]
     Indication: ATRIAL FIBRILLATION
     Route: 048
     Dates: start: 20110112, end: 20110301

REACTIONS (4)
  - BLOOD CREATININE INCREASED [None]
  - BLOOD UREA INCREASED [None]
  - PAIN [None]
  - FATIGUE [None]
